FAERS Safety Report 4418071-5 (Version None)
Quarter: 2004Q3

REPORT INFORMATION
  Report Type: 
  Country: None (occurrence: None)
  Receive Date: 20040730
  Receipt Date: 20040714
  Transmission Date: 20050211
  Serious: Yes (Life-Threatening, Hospitalization)
  Sender: FDA-Public Use
  Company Number: JP-SHR-04-019346

PATIENT
  Age: 80 Year
  Sex: Female

DRUGS (2)
  1. PROSCOPE 300(IOPROMIDE) INFUSION [Suspect]
     Indication: COMPUTERISED TOMOGRAM
     Dosage: 100 ML, INTRAVENOUS
     Route: 042
     Dates: start: 20031218, end: 20031218
  2. PROSCOPE 300(IOPROMIDE) INFUSION [Suspect]
     Indication: COMPUTERISED TOMOGRAM
     Dosage: 100 ML, INTRAVENOUS
     Route: 042
     Dates: start: 20040305, end: 20040305

REACTIONS (6)
  - ANAPHYLACTIC SHOCK [None]
  - COLON CANCER [None]
  - COUGH [None]
  - HEPATIC CANCER METASTATIC [None]
  - OXYGEN SATURATION DECREASED [None]
  - SHOCK [None]
